FAERS Safety Report 21465879 (Version 1)
Quarter: 2022Q4

REPORT INFORMATION
  Report Type: Spontaneous
  Country: US (occurrence: US)
  Receive Date: 20221017
  Receipt Date: 20221017
  Transmission Date: 20230113
  Serious: Yes (Hospitalization, Other)
  Sender: FDA-Public Use
  Company Number: US-TRIS PHARMA, INC.-22US010482

PATIENT

DRUGS (9)
  1. NEXICLON XR [Suspect]
     Active Substance: CLONIDINE
     Indication: Anxiety
     Dosage: 0.1 MILLIGRAM, TID
  2. YOHIMBINE [Suspect]
     Active Substance: YOHIMBINE
     Indication: Supplementation therapy
     Dosage: UNK
  3. BUPROPION HYDROCHLORIDE [Suspect]
     Active Substance: BUPROPION HYDROCHLORIDE
     Indication: Product used for unknown indication
     Dosage: 450 MILLIGRAM, QD
  4. DESVENLAFAXINE [Suspect]
     Active Substance: DESVENLAFAXINE
     Indication: Product used for unknown indication
     Dosage: 200 MILLIGRAM, QD
  5. BUPRENORPHINE HYDROCHLORIDE\NALOXONE HYDROCHLORIDE [Suspect]
     Active Substance: BUPRENORPHINE HYDROCHLORIDE\NALOXONE HYDROCHLORIDE
     Indication: Product used for unknown indication
     Dosage: 1.5 FILMS, QD
  6. LISDEXAMFETAMINE [Concomitant]
     Active Substance: LISDEXAMFETAMINE
     Indication: Product used for unknown indication
     Dosage: 60 MILLIGRAM, MORNING
  7. LISDEXAMFETAMINE [Concomitant]
     Active Substance: LISDEXAMFETAMINE
     Dosage: 40 MILLIGRAM, QD(NOON)
  8. TRAZODONE [Concomitant]
     Active Substance: TRAZODONE HYDROCHLORIDE
     Indication: Product used for unknown indication
     Dosage: 100 MILLIGRAM, QD (NIGHTLY)
  9. LEVONORGESTREL [Concomitant]
     Active Substance: LEVONORGESTREL
     Indication: Contraception
     Dosage: UNK

REACTIONS (7)
  - Haemorrhage intracranial [Recovered/Resolved with Sequelae]
  - Hypertensive crisis [Unknown]
  - Hemiparesis [Not Recovered/Not Resolved]
  - Facial paralysis [Not Recovered/Not Resolved]
  - Aphasia [Not Recovered/Not Resolved]
  - Drug interaction [Unknown]
  - Off label use [Unknown]
